FAERS Safety Report 6687417-X (Version None)
Quarter: 2010Q2

REPORT INFORMATION
  Report Type: 
  Country: None (occurrence: None)
  Receive Date: 20100416
  Receipt Date: 20100416
  Transmission Date: 20101027
  Serious: No
  Sender: FDA-Public Use
  Company Number: None

PATIENT
  Age: 76 Year
  Sex: Female
  Weight: 68.0396 kg

DRUGS (1)
  1. LEXAPRO [Suspect]
     Indication: ANXIETY
     Dosage: ONE HALF OF A 10 MG. TABLET EACH DAY PO
     Route: 048
     Dates: start: 20100219, end: 20100225

REACTIONS (1)
  - TINNITUS [None]
